FAERS Safety Report 10047493 (Version 2)
Quarter: 2014Q2

REPORT INFORMATION
  Report Type: Report from Study
  Country: US (occurrence: US)
  Receive Date: 20140331
  Receipt Date: 20140618
  Transmission Date: 20141212
  Serious: Yes (Hospitalization)
  Sender: FDA-Public Use
  Company Number: US-ROCHE-1371816

PATIENT
  Age: 31 Year
  Sex: 0
  Weight: 118 kg

DRUGS (6)
  1. KLONOPIN [Suspect]
     Indication: ANXIETY
     Route: 048
     Dates: start: 20140122
  2. ZOLOFT [Concomitant]
     Indication: OBSESSIVE-COMPULSIVE DISORDER
     Route: 048
     Dates: start: 20140115
  3. ZOLOFT [Concomitant]
     Indication: MAJOR DEPRESSION
  4. ZOLOFT [Concomitant]
     Indication: DYSTHYMIC DISORDER
  5. TRAZODONE [Concomitant]
     Indication: SLEEP DISORDER
     Route: 065
     Dates: start: 20140122
  6. ABILIFY [Concomitant]
     Indication: ADJUVANT THERAPY
     Route: 048
     Dates: start: 20140306

REACTIONS (1)
  - Suicidal ideation [Recovered/Resolved]
